FAERS Safety Report 4730821-7 (Version None)
Quarter: 2005Q3

REPORT INFORMATION
  Report Type: 
  Country: None (occurrence: None)
  Receive Date: 20050719
  Receipt Date: 20030711
  Transmission Date: 20060218
  Serious: Yes (Hospitalization)
  Sender: FDA-Public Use
  Company Number: 158306

PATIENT
  Age: 54 Year
  Sex: Female

DRUGS (17)
  1. AVONEX [Suspect]
     Indication: MULTIPLE SCLEROSIS
     Dosage: 30 UG;QW;IM; SEE IMAGE
     Route: 030
     Dates: start: 20010601, end: 20021101
  2. AVONEX [Suspect]
     Indication: MULTIPLE SCLEROSIS
     Dosage: 30 UG;QW;IM; SEE IMAGE
     Route: 030
     Dates: start: 20030401
  3. SALAGEN [Concomitant]
  4. CELEBREX [Concomitant]
  5. NEURONTIN [Concomitant]
  6. GLUCOPHAGE [Concomitant]
  7. PRANDIN [Concomitant]
  8. SYNTHROID [Concomitant]
  9. LOPID [Concomitant]
  10. CALAN [Concomitant]
  11. LASIX [Concomitant]
  12. COLACE [Concomitant]
  13. ULTRAM [Concomitant]
  14. LORTAB [Concomitant]
  15. SEREVENT [Concomitant]
  16. PULMICORT [Concomitant]
  17. FLONASE [Concomitant]

REACTIONS (8)
  - BLOOD PRESSURE INCREASED [None]
  - CHEST PAIN [None]
  - DYSPNOEA [None]
  - INTESTINAL OBSTRUCTION [None]
  - NAUSEA [None]
  - RASH [None]
  - SKIN DISCOLOURATION [None]
  - SWELLING FACE [None]
